FAERS Safety Report 4803697-7 (Version None)
Quarter: 2005Q4

REPORT INFORMATION
  Report Type: 
  Country: None (occurrence: None)
  Receive Date: 20051014
  Receipt Date: 20050930
  Transmission Date: 20060501
  Serious: Yes (Other)
  Sender: FDA-Public Use
  Company Number: 216711

PATIENT
  Age: 43 Year
  Sex: Female
  Weight: 80.9 kg

DRUGS (3)
  1. MABTHERA(RITUXIMAB) CONC FOR SOLUTION FOR INFUSION [Suspect]
     Indication: RHEUMATOID ARTHRITIS
     Dosage: 1000 MG, INTRAVENOUS
     Route: 042
     Dates: start: 20050803, end: 20050803
  2. CHLORPHENIRAMINE MALEATE [Concomitant]
  3. METHYLPREDNISOLONE [Concomitant]

REACTIONS (4)
  - CHEST DISCOMFORT [None]
  - HOT FLUSH [None]
  - PRURITUS [None]
  - VISION BLURRED [None]
